FAERS Safety Report 8000100-3 (Version None)
Quarter: 2011Q4

REPORT INFORMATION
  Report Type: 
  Country: None (occurrence: None)
  Receive Date: 20111220
  Receipt Date: 20111220
  Transmission Date: 20120403
  Serious: No
  Sender: FDA-Public Use
  Company Number: None

PATIENT
  Age: 73 Year
  Sex: Female
  Weight: 45.3597 kg

DRUGS (1)
  1. CIPROFLOXACIN [Suspect]
     Indication: URINARY TRACT INFECTION
     Dosage: 250 MG BID P.O.
     Route: 048
     Dates: start: 20110714, end: 20110716

REACTIONS (4)
  - TENDON PAIN [None]
  - SWELLING [None]
  - ERYTHEMA [None]
  - HAEMOLYSIS [None]
